FAERS Safety Report 8059728-7 (Version None)
Quarter: 2012Q1

REPORT INFORMATION
  Report Type: 
  Country: None (occurrence: None)
  Receive Date: 20120120
  Receipt Date: 20120117
  Transmission Date: 20120608
  Serious: Yes (Other)
  Sender: FDA-Public Use
  Company Number: PHFR2012IE000729

PATIENT
  Sex: Male

DRUGS (3)
  1. CLOZARIL [Suspect]
     Dosage: 350 MG, DAILY
  2. CLOZARIL [Suspect]
     Route: 048
     Dates: start: 20090518
  3. CLOZARIL [Suspect]
     Dosage: 300 MG, DAILY
     Dates: start: 20110201

REACTIONS (2)
  - PSYCHOTIC DISORDER [None]
  - FATIGUE [None]
